FAERS Safety Report 19743790 (Version 1)
Quarter: 2021Q3

REPORT INFORMATION
  Report Type: Spontaneous
  Country: FR (occurrence: FR)
  Receive Date: 20210825
  Receipt Date: 20210825
  Transmission Date: 20211014
  Serious: Yes (Other)
  Sender: FDA-Public Use
  Company Number: FR-SA-2021SA279866

PATIENT
  Age: 38 Year
  Sex: Male
  Weight: 85 kg

DRUGS (5)
  1. CLOXACILLIN [Suspect]
     Active Substance: CLOXACILLIN
     Indication: STAPHYLOCOCCAL BACTERAEMIA
     Dosage: UNK
     Route: 042
     Dates: start: 20210530, end: 20210611
  2. SUFENTANIL [Suspect]
     Active Substance: SUFENTANIL
     Indication: SEDATION
     Dosage: UNK
     Route: 042
     Dates: start: 20210529, end: 20210610
  3. TAZOCILLINE [Suspect]
     Active Substance: PIPERACILLIN SODIUM\TAZOBACTAM SODIUM
     Indication: ANTIBIOTIC THERAPY
     Dosage: UNK
     Route: 042
     Dates: start: 20210604, end: 20210611
  4. NIMBEX [Suspect]
     Active Substance: CISATRACURIUM BESYLATE
     Indication: ABDOMINAL COMPARTMENT SYNDROME
     Dosage: UNK
     Route: 042
     Dates: start: 20210529, end: 20210610
  5. ENOXAPARIN SODIUM. [Suspect]
     Active Substance: ENOXAPARIN SODIUM
     Indication: METABOLIC DISORDER PROPHYLAXIS
     Dosage: UNK
     Route: 058
     Dates: start: 20210527, end: 20210610

REACTIONS (1)
  - Rash maculo-papular [Not Recovered/Not Resolved]

NARRATIVE: CASE EVENT DATE: 20210609
